FAERS Safety Report 23260071 (Version 1)
Quarter: 2023Q4

REPORT INFORMATION
  Report Type: Report from Study
  Country: PH (occurrence: PH)
  Receive Date: 20231204
  Receipt Date: 20231204
  Transmission Date: 20240109
  Serious: Yes (Other)
  Sender: FDA-Public Use
  Company Number: PH-TAKEDA-2022TUS062930

PATIENT
  Age: 24 Year
  Sex: Female

DRUGS (1)
  1. VEDOLIZUMAB [Suspect]
     Active Substance: VEDOLIZUMAB
     Indication: Crohn^s disease
     Dosage: 300 MILLIGRAM
     Route: 042
     Dates: start: 20220303, end: 20230119

REACTIONS (5)
  - Crohn^s disease [Recovered/Resolved]
  - Female genital tract fistula [Unknown]
  - Anxiety [Unknown]
  - Depression [Unknown]
  - Fear [Unknown]
